FAERS Safety Report 6788571-1 (Version None)
Quarter: 2010Q2

REPORT INFORMATION
  Report Type: 
  Country: None (occurrence: None)
  Receive Date: 20100623
  Receipt Date: 20080506
  Transmission Date: 20101027
  Serious: No
  Sender: FDA-Public Use
  Company Number: US-PFIZER INC-2008023487

PATIENT
  Sex: Male
  Weight: 99.79 kg

DRUGS (2)
  1. VERAPAMIL HYDROCHLORIDE [Suspect]
     Indication: HYPERTENSION
     Route: 048
     Dates: start: 19850101
  2. AVAPRO [Concomitant]
     Dates: start: 20010101

REACTIONS (2)
  - FATIGUE [None]
  - VITAMIN D DEFICIENCY [None]
